FAERS Safety Report 6554770-7 (Version None)
Quarter: 2010Q1

REPORT INFORMATION
  Report Type: 
  Country: None (occurrence: None)
  Receive Date: 20100127
  Receipt Date: 20100120
  Transmission Date: 20100710
  Serious: Yes (Hospitalization)
  Sender: FDA-Public Use
  Company Number: US-SANOFI-AVENTIS-F03200700191

PATIENT
  Age: 72 Year
  Sex: Male

DRUGS (10)
  1. OXALIPLATIN [Suspect]
     Dosage: ONCE PER 2 WEEKS
     Route: 041
     Dates: start: 20070716, end: 20070716
  2. OXALIPLATIN [Suspect]
     Dosage: ONCE PER 2 WEEKS
     Route: 041
     Dates: start: 20070730, end: 20070730
  3. BEVACIZUMAB [Suspect]
     Dosage: ONCE PER 2 WEEKS
     Route: 041
     Dates: start: 20070716, end: 20070716
  4. BEVACIZUMAB [Suspect]
     Dosage: ONCE PER 2 WEEKS
     Route: 041
     Dates: start: 20070730, end: 20070730
  5. GIMERACIL/OTERACIL POTASSIUM/TEGAFUR [Suspect]
     Route: 048
     Dates: start: 20070716, end: 20070805
  6. MS CONTIN [Concomitant]
     Dates: start: 20070730
  7. LACTULOSE [Concomitant]
  8. COLACE [Concomitant]
     Indication: DRUG USE FOR UNKNOWN INDICATION
  9. SIMETHICONE [Concomitant]
     Indication: DRUG USE FOR UNKNOWN INDICATION
  10. DARBEPOETIN ALFA [Concomitant]
     Dates: start: 20070730, end: 20070730

REACTIONS (4)
  - DYSPHAGIA [None]
  - PLEURAL EFFUSION [None]
  - PNEUMONIA [None]
  - PNEUMOPERICARDIUM [None]
